FAERS Safety Report 20208524 (Version 1)
Quarter: 2021Q4

REPORT INFORMATION
  Report Type: Spontaneous
  Country: US (occurrence: US)
  Receive Date: 20211220
  Receipt Date: 20211220
  Transmission Date: 20220303
  Serious: Yes (Life-Threatening, Hospitalization)
  Sender: FDA-Public Use
  Company Number: US-TEVA-2021-US-1989822

PATIENT
  Age: 46 Year
  Sex: Male

DRUGS (1)
  1. NOREPINEPHRINE [Suspect]
     Active Substance: NOREPINEPHRINE
     Indication: Hypotension
     Dosage: FOR 12HRS
     Route: 042

REACTIONS (3)
  - Tissue injury [Recovered/Resolved with Sequelae]
  - Buttock injury [Recovered/Resolved with Sequelae]
  - Drug ineffective [Unknown]
